FAERS Safety Report 23621062 (Version 1)
Quarter: 2024Q1

REPORT INFORMATION
  Report Type: Spontaneous
  Country: ES (occurrence: ES)
  Receive Date: 20240312
  Receipt Date: 20240312
  Transmission Date: 20240410
  Serious: Yes (Other)
  Sender: FDA-Public Use
  Company Number: ES-NORGINE LIMITED-NOR202400598

PATIENT
  Age: 88 Year
  Sex: Female

DRUGS (12)
  1. CLOPIDOGREL [Interacting]
     Active Substance: CLOPIDOGREL BISULFATE
     Indication: Product used for unknown indication
     Dosage: UNK
     Route: 065
  2. NAPROXEN SODIUM [Interacting]
     Active Substance: NAPROXEN\NAPROXEN SODIUM
     Indication: Flank pain
     Dosage: UNK
     Route: 065
  3. NAPROXEN SODIUM [Interacting]
     Active Substance: NAPROXEN\NAPROXEN SODIUM
     Indication: Fall
  4. MOVICOL [Interacting]
     Active Substance: POLYETHYLENE GLYCOL 3350\POTASSIUM CHLORIDE\SODIUM BICARBONATE\SODIUM CHLORIDE
     Indication: Faecaloma
     Dosage: FROM AUG-SEP- DOSE INCREASED TO 2-3 SACHETS PER DAY-QD
     Route: 065
     Dates: start: 202308, end: 20240212
  5. MOVICOL [Interacting]
     Active Substance: POLYETHYLENE GLYCOL 3350\POTASSIUM CHLORIDE\SODIUM BICARBONATE\SODIUM CHLORIDE
     Indication: Constipation
     Dosage: 1 DOSAGE FORM, QD
     Route: 065
     Dates: start: 202301
  6. ATORVASTATIN [Concomitant]
     Active Substance: ATORVASTATIN
     Indication: Product used for unknown indication
     Dosage: UNK
     Route: 065
  7. CALCIFEDIOL [Concomitant]
     Active Substance: CALCIFEDIOL
     Indication: Product used for unknown indication
     Dosage: UNK, MONTHLY
     Route: 065
  8. LEVOSULPIRIDE [Concomitant]
     Active Substance: LEVOSULPIRIDE
     Indication: Product used for unknown indication
     Dosage: UNK
     Route: 065
  9. LOSARTAN [Concomitant]
     Active Substance: LOSARTAN
     Indication: Hypertension
     Dosage: 12.5 MG, QD-MORE THAN A YEAR AGO
     Route: 065
  10. LOSARTAN [Concomitant]
     Active Substance: LOSARTAN
     Dosage: 2 DOSAGE FORM, QD/2 DOSES OF 50 MG PER DAY
     Route: 065
     Dates: start: 20240213
  11. LOSARTAN [Concomitant]
     Active Substance: LOSARTAN
     Dosage: 50 MILLIGRAM
     Route: 065
     Dates: start: 202312
  12. OMEPRAZOLE [Concomitant]
     Active Substance: OMEPRAZOLE
     Indication: Product used for unknown indication
     Dosage: UNK
     Route: 065

REACTIONS (11)
  - Dizziness [Recovering/Resolving]
  - Encopresis [Recovering/Resolving]
  - Facial paralysis [Recovering/Resolving]
  - Fall [Recovering/Resolving]
  - Flank pain [Recovering/Resolving]
  - Flatulence [Recovering/Resolving]
  - Headache [Recovering/Resolving]
  - Hypertension [Recovering/Resolving]
  - Drug ineffective [Unknown]
  - Drug interaction [Unknown]
  - Treatment noncompliance [Unknown]

NARRATIVE: CASE EVENT DATE: 20230101
